FAERS Safety Report 6741572-1 (Version None)
Quarter: 2010Q2

REPORT INFORMATION
  Report Type: 
  Country: None (occurrence: None)
  Receive Date: 20100526
  Receipt Date: 20100517
  Transmission Date: 20101027
  Serious: Yes (Other)
  Sender: FDA-Public Use
  Company Number: CA-ABBOTT-10P-028-0645151-00

PATIENT
  Weight: 81 kg

DRUGS (3)
  1. MAVIK [Suspect]
     Indication: ESSENTIAL HYPERTENSION
     Dosage: 1MG QD
     Route: 048
     Dates: start: 20100205
  2. MAVIK [Suspect]
     Dosage: 0.5MG QD
     Route: 048
     Dates: start: 20100416
  3. MAVIK [Suspect]
     Dosage: EVERY DAY
     Route: 048
     Dates: start: 20100205

REACTIONS (1)
  - INFARCTION [None]
